FAERS Safety Report 6673700-0 (Version None)
Quarter: 2010Q2

REPORT INFORMATION
  Report Type: 
  Country: None (occurrence: None)
  Receive Date: 20100408
  Receipt Date: 20100325
  Transmission Date: 20101027
  Serious: Yes (Death)
  Sender: FDA-Public Use
  Company Number: GB-AMGEN-US388459

PATIENT
  Sex: Male

DRUGS (3)
  1. ENBREL [Suspect]
     Indication: PSORIASIS
     Route: 058
     Dates: start: 20070322, end: 20080924
  2. METHOTREXATE [Concomitant]
     Indication: DRUG USE FOR UNKNOWN INDICATION
     Dosage: MINIMAL (DOSAGE UNSPECIFIED)
     Dates: start: 19790101, end: 19840101
  3. BETNOVATE [Concomitant]
     Indication: PSORIASIS
     Dosage: UNKNOWN DOSE DAILY
     Route: 061

REACTIONS (3)
  - CONDITION AGGRAVATED [None]
  - HEPATIC NEOPLASM MALIGNANT [None]
  - PSORIASIS [None]
